FAERS Safety Report 13487335 (Version 1)
Quarter: 2017Q2

REPORT INFORMATION
  Report Type: Spontaneous
  Country: US (occurrence: US)
  Receive Date: 20170426
  Receipt Date: 20170426
  Transmission Date: 20170830
  Serious: No
  Sender: FDA-Public Use
  Company Number: US-ALKERMES INC.-ALK-2016-002153

PATIENT
  Age: 28 Year
  Sex: Male

DRUGS (1)
  1. VIVITROL [Suspect]
     Active Substance: NALTREXONE
     Indication: DRUG USE DISORDER
     Dosage: 380 MG, QMO
     Route: 030
     Dates: start: 20160728

REACTIONS (6)
  - Libido disorder [Recovering/Resolving]
  - Irritability [Recovering/Resolving]
  - Feeling abnormal [Recovering/Resolving]
  - Lethargy [Recovering/Resolving]
  - Depressed mood [Recovering/Resolving]
  - Malaise [Recovering/Resolving]

NARRATIVE: CASE EVENT DATE: 2016
